FAERS Safety Report 12646785 (Version 3)
Quarter: 2016Q3

REPORT INFORMATION
  Report Type: Spontaneous
  Country: SI (occurrence: SI)
  Receive Date: 20160812
  Receipt Date: 20160908
  Transmission Date: 20161109
  Serious: Yes (Other)
  Sender: FDA-Public Use
  Company Number: SI-009507513-1607SVN013100

PATIENT
  Age: 46 Year
  Sex: Male

DRUGS (6)
  1. VANCOMYCIN [Suspect]
     Active Substance: VANCOMYCIN
     Indication: NOSOCOMIAL INFECTION
  2. IMIPENEM AND CILASTATIN [Suspect]
     Active Substance: CILASTATIN SODIUM\IMIPENEM
     Indication: NOSOCOMIAL INFECTION
  3. HYDROCORTISONE. [Concomitant]
     Active Substance: HYDROCORTISONE
  4. PROPOFOL. [Suspect]
     Active Substance: PROPOFOL
  5. AMOXICILLIN. [Concomitant]
     Active Substance: AMOXICILLIN
     Indication: NOSOCOMIAL INFECTION
  6. CLAVULANIC ACID [Concomitant]
     Active Substance: CLAVULANIC ACID
     Indication: NOSOCOMIAL INFECTION

REACTIONS (2)
  - Drug ineffective [Unknown]
  - Rhabdomyolysis [Unknown]
